FAERS Safety Report 4637752-1 (Version None)
Quarter: 2005Q2

REPORT INFORMATION
  Report Type: 
  Country: None (occurrence: None)
  Receive Date: 20050328
  Receipt Date: 20050208
  Transmission Date: 20051028
  Serious: No
  Sender: FDA-Public Use
  Company Number: USA041286052

PATIENT
  Age: 66 Year
  Sex: Female
  Weight: 70 kg

DRUGS (7)
  1. STRATTERA [Suspect]
     Indication: THINKING ABNORMAL
     Dosage: 25 MG DAY
     Dates: start: 20041210, end: 20041212
  2. PRINIVIL [Concomitant]
  3. PAXIL [Concomitant]
  4. WELLBUTRIN [Concomitant]
  5. BUMEX [Concomitant]
  6. KLOR-CON [Concomitant]
  7. LEVOTHROID [Concomitant]

REACTIONS (4)
  - DIZZINESS [None]
  - HYPERHIDROSIS [None]
  - PALPITATIONS [None]
  - SENSATION OF HEAVINESS [None]
